FAERS Safety Report 9169004 (Version 1)
Quarter: 2013Q1

REPORT INFORMATION
  Report Type: Spontaneous
  Country: US (occurrence: US)
  Receive Date: 20130318
  Receipt Date: 20130318
  Transmission Date: 20140127
  Serious: No
  Sender: FDA-Public Use
  Company Number: US-TEVA-391982USA

PATIENT
  Age: 33 Year
  Sex: Female
  Weight: 52.21 kg

DRUGS (3)
  1. PLAN B ONE-STEP [Suspect]
     Indication: POST COITAL CONTRACEPTION
     Dosage: 1.5 MILLIGRAM DAILY;
     Route: 048
     Dates: start: 20130303, end: 20130303
  2. KLONOPIN [Concomitant]
     Indication: ANXIETY
     Dates: start: 2010
  3. VESICARE [Concomitant]
     Indication: HYPERTONIC BLADDER
     Dosage: FREQUENCY ONCE
     Dates: start: 2011

REACTIONS (7)
  - Vaginal discharge [Not Recovered/Not Resolved]
  - Eye irritation [Not Recovered/Not Resolved]
  - Pain [Not Recovered/Not Resolved]
  - Dysmenorrhoea [Not Recovered/Not Resolved]
  - Breast pain [Not Recovered/Not Resolved]
  - Headache [Not Recovered/Not Resolved]
  - Menstruation irregular [Not Recovered/Not Resolved]
